FAERS Safety Report 7183904-9 (Version None)
Quarter: 2010Q4

REPORT INFORMATION
  Report Type: 
  Country: None (occurrence: None)
  Receive Date: 20101222
  Receipt Date: 20101213
  Transmission Date: 20110411
  Serious: Yes (Hospitalization, Other)
  Sender: FDA-Public Use
  Company Number: US-B.I. PHARMACEUTICALS,INC./RIDGEFIELD-2010-BP-14410BP

PATIENT
  Sex: Male

DRUGS (16)
  1. PRADAXA [Suspect]
     Indication: ATRIAL FIBRILLATION
     Dosage: 300 MG
     Route: 048
     Dates: start: 20101201, end: 20101211
  2. PRADAXA [Suspect]
     Indication: ANTICOAGULANT THERAPY
     Dosage: 300 MG
     Route: 048
     Dates: start: 20101213
  3. PLAVIX [Suspect]
     Indication: CARDIAC DISORDER
     Route: 048
     Dates: end: 20101211
  4. PLAVIX [Suspect]
     Route: 048
     Dates: start: 20101213
  5. TRICOR [Concomitant]
     Indication: BLOOD TRIGLYCERIDES ABNORMAL
  6. JANUVIA [Concomitant]
     Indication: DIABETES MELLITUS
  7. ISOSORBIDE MN [Concomitant]
     Indication: CARDIAC DISORDER
  8. FUROSEMIDE [Concomitant]
     Indication: HYPERTENSION
  9. DIOVAN HCT [Concomitant]
     Indication: CARDIAC DISORDER
  10. DIOVAN HCT [Concomitant]
     Indication: HYPERTENSION
  11. DIGOXIN [Concomitant]
     Indication: CARDIAC DISORDER
  12. POT CL [Concomitant]
  13. AZOPT [Concomitant]
     Indication: MACULAR DEGENERATION
  14. NEVANAC [Concomitant]
  15. LATANOPROST [Concomitant]
  16. UNSPECIFIED NEBULIZER [Concomitant]

REACTIONS (6)
  - ASTHENIA [None]
  - FAECES DISCOLOURED [None]
  - HAEMATOCHEZIA [None]
  - HALLUCINATION, VISUAL [None]
  - HYPOTENSION [None]
  - RECTAL HAEMORRHAGE [None]
